FAERS Safety Report 8948671 (Version 1)
Quarter: 2012Q4

REPORT INFORMATION
  Report Type: 
  Country: BR (occurrence: BR)
  Receive Date: 20121206
  Receipt Date: 20121206
  Transmission Date: 20130627
  Serious: Yes (Death)
  Sender: FDA-Public Use
  Company Number: PHHY2012BR112151

PATIENT
  Age: 103 Year
  Sex: Female
  Weight: 62 kg

DRUGS (1)
  1. DIOVAN AMLO FIX [Suspect]
     Indication: HYPERTENSION
     Dosage: 1 DF (320 mg vals and 5 mg amlo), QD
     Route: 048
     Dates: start: 2010, end: 2011

REACTIONS (1)
  - Death [Fatal]
